FAERS Safety Report 4855137-X (Version None)
Quarter: 2005Q4

REPORT INFORMATION
  Report Type: 
  Country: None (occurrence: None)
  Receive Date: 20051125
  Receipt Date: 20041119
  Transmission Date: 20060501
  Serious: Yes (Disabling, Other)
  Sender: FDA-Public Use
  Company Number: US-JNJFOC-20040901257

PATIENT
  Age: 79 Year
  Sex: Female

DRUGS (4)
  1. LEVAQUIN [Suspect]
     Indication: UPPER RESPIRATORY TRACT INFECTION
     Dosage: 500 MG, 1 IN 1 DAY
     Dates: start: 20040524, end: 20040531
  2. PRAVACHOL [Concomitant]
  3. BEXTRA [Concomitant]
  4. LEVOXYL [Concomitant]

REACTIONS (1)
  - TENDONITIS [None]
